FAERS Safety Report 14662468 (Version 11)
Quarter: 2018Q4

REPORT INFORMATION
  Report Type: Report from Study
  Country: JP (occurrence: JP)
  Receive Date: 20180321
  Receipt Date: 20181119
  Transmission Date: 20190204
  Serious: Yes (Hospitalization)
  Sender: FDA-Public Use
  Company Number: JP-ROCHE-2080310

PATIENT
  Age: 56 Year
  Sex: Female
  Weight: 44.3 kg

DRUGS (68)
  1. PACLITAXEL. [Suspect]
     Active Substance: PACLITAXEL
     Route: 042
     Dates: start: 20180710
  2. ACELIO [Concomitant]
     Active Substance: ACETAMINOPHEN
     Indication: ANAESTHESIA
     Route: 065
     Dates: start: 20180316, end: 20180316
  3. TRAMAL [Concomitant]
     Active Substance: TRAMADOL
     Indication: ABDOMINAL PAIN
     Route: 065
     Dates: start: 20180120, end: 20180122
  4. LACTEC [Concomitant]
     Active Substance: CALCIUM CHLORIDE ANHYDROUS\POTASSIUM CHLORIDE\SODIUM CHLORIDE\SODIUM LACTATE
     Route: 065
     Dates: start: 20180223, end: 20180315
  5. LACTEC [Concomitant]
     Active Substance: CALCIUM CHLORIDE ANHYDROUS\POTASSIUM CHLORIDE\SODIUM CHLORIDE\SODIUM LACTATE
     Route: 065
     Dates: start: 20180317, end: 20180319
  6. ALLOID G [Concomitant]
     Active Substance: SODIUM ALGINATE
     Indication: ABDOMINAL PAIN UPPER
     Route: 048
     Dates: start: 20180117
  7. FAMOTIDINE D [Concomitant]
     Active Substance: FAMOTIDINE
     Indication: ABDOMINAL PAIN UPPER
     Route: 065
     Dates: start: 20180312, end: 20180315
  8. FAMOTIDINE D [Concomitant]
     Active Substance: FAMOTIDINE
     Route: 065
     Dates: start: 20180327, end: 20180423
  9. LEVOFLOXACIN. [Concomitant]
     Active Substance: LEVOFLOXACIN
     Indication: CYSTITIS
     Route: 065
     Dates: start: 20180326, end: 20180401
  10. SUPRANE [Concomitant]
     Active Substance: DESFLURANE
     Indication: ANAESTHESIA
     Route: 065
     Dates: start: 20180316, end: 20180316
  11. ESLAX [Concomitant]
     Active Substance: ROCURONIUM BROMIDE
     Indication: ANAESTHESIA
     Route: 042
     Dates: start: 20180316, end: 20180316
  12. BRIDION [Concomitant]
     Active Substance: SUGAMMADEX
     Route: 065
     Dates: start: 20180316, end: 20180316
  13. LACTEC G [Concomitant]
     Active Substance: CALCIUM CHLORIDE\POTASSIUM CHLORIDE\SODIUM CHLORIDE\SODIUM LACTATE\SORBITOL
     Route: 065
     Dates: start: 20180424
  14. DOMPERIDONE [Concomitant]
     Active Substance: DOMPERIDONE
     Indication: NAUSEA
     Route: 065
     Dates: start: 20171223, end: 20180220
  15. VITAMEDIN (JAPAN) [Concomitant]
     Indication: VITAMIN SUPPLEMENTATION
     Route: 042
     Dates: start: 20180201, end: 20180208
  16. SELBEX [Concomitant]
     Active Substance: TEPRENONE
     Indication: ABDOMINAL PAIN UPPER
     Route: 065
     Dates: start: 20180204, end: 20180205
  17. ALBUMINAR [Concomitant]
     Active Substance: ALBUMIN HUMAN
     Route: 065
     Dates: start: 20180317, end: 20180319
  18. DROLEPTAN [Concomitant]
     Active Substance: DROPERIDOL
     Indication: ANAESTHESIA
     Route: 065
     Dates: start: 20180316, end: 20180319
  19. DOPAMINE [Concomitant]
     Active Substance: DOPAMINE\DOPAMINE HYDROCHLORIDE
     Route: 065
     Dates: start: 20180316, end: 20180316
  20. CARBOPLATIN. [Suspect]
     Active Substance: CARBOPLATIN
     Indication: OVARIAN CANCER
     Dosage: ACHIEVE A TARGET AREA UNDER THE CURVE (AUC) OF 6 MILLIGRAMS PER MILLILITER MINUTE (MG/ML MIN) ON DAY
     Route: 042
     Dates: start: 20171222, end: 20180426
  21. TAKECAB [Concomitant]
     Active Substance: VONOPRAZAN FUMURATE
     Indication: GASTRITIS PROPHYLAXIS
     Route: 065
     Dates: end: 20180314
  22. ACELIO [Concomitant]
     Active Substance: ACETAMINOPHEN
     Indication: WOUND COMPLICATION
     Route: 065
     Dates: start: 20180317, end: 20180327
  23. VEEN-D [Concomitant]
     Active Substance: DEXTROSE
     Route: 065
     Dates: start: 20180316, end: 20180317
  24. FERROMIA [Concomitant]
     Active Substance: SODIUM FERROUS CITRATE
     Indication: ANAEMIA
     Route: 065
     Dates: start: 20180327, end: 20180411
  25. TAKECAB [Concomitant]
     Active Substance: VONOPRAZAN FUMURATE
     Route: 065
     Dates: start: 20180423
  26. SENIRAN [Concomitant]
     Active Substance: BROMAZEPAM
     Indication: NAUSEA
     Route: 065
     Dates: start: 20180424, end: 20180424
  27. PACLITAXEL. [Suspect]
     Active Substance: PACLITAXEL
     Indication: OVARIAN CANCER
     Dosage: DATE OF MOST RECENT DOSE 246 MG OF PACLITAXEL PRIOR TO AE ONSET: 06/FEB/2018
     Route: 042
     Dates: start: 20171222, end: 20180426
  28. TRAMCET [Concomitant]
     Active Substance: ACETAMINOPHEN\TRAMADOL
     Indication: CANCER PAIN
     Route: 065
     Dates: end: 20180209
  29. MIYA-BM [Concomitant]
     Active Substance: CLOSTRIDIUM BUTYRICUM SPORES STRAIN M-55
     Indication: DIARRHOEA
     Route: 065
     Dates: start: 20180102
  30. ALOSENN [Concomitant]
     Active Substance: SENNA LEAF
     Indication: CONSTIPATION PROPHYLAXIS
     Route: 065
     Dates: start: 20180119
  31. FAMOTIDINE. [Concomitant]
     Active Substance: FAMOTIDINE
     Indication: ABDOMINAL PAIN UPPER
     Route: 065
     Dates: start: 20180120, end: 20180122
  32. PANTOL (JAPAN) [Concomitant]
     Route: 065
     Dates: start: 20180317, end: 20180402
  33. ROPION [Concomitant]
     Active Substance: FLURBIPROFEN AXETIL
     Indication: WOUND COMPLICATION
     Route: 042
     Dates: start: 20180317, end: 20180317
  34. FENTANYL. [Concomitant]
     Active Substance: FENTANYL
     Indication: ANAESTHESIA
     Route: 065
     Dates: start: 20180316, end: 20180319
  35. POPSCAINE [Concomitant]
     Active Substance: LEVOBUPIVACAINE HYDROCHLORIDE
     Indication: ANAESTHESIA
     Route: 065
     Dates: start: 20180316, end: 20180319
  36. INDIGO CARMINE [Concomitant]
     Active Substance: INDIGOTINDISULFONATE SODIUM
     Route: 065
     Dates: start: 20180316, end: 20180316
  37. AMIPAREN [Concomitant]
     Active Substance: AMINO ACIDS
     Route: 065
     Dates: start: 20180316, end: 20180316
  38. PHYSIO140 [Concomitant]
     Route: 065
     Dates: start: 20180316, end: 20180316
  39. PACKED RED BLOOD CELL [Concomitant]
     Active Substance: HUMAN RED BLOOD CELL
     Indication: ANAEMIA
     Route: 065
     Dates: start: 20180316, end: 20180316
  40. BEVACIZUMAB. [Suspect]
     Active Substance: BEVACIZUMAB
     Indication: OVARIAN CANCER
     Dosage: DATE OF MOST RECENT DOSE 654 MG OF BEVACIZUMAB PRIOR TO AE ONSET 16/JAN/2018
     Route: 042
     Dates: start: 20171222, end: 20180426
  41. DESYREL [Concomitant]
     Active Substance: TRAZODONE HYDROCHLORIDE
     Indication: INSOMNIA
     Route: 065
     Dates: start: 20180111, end: 20180123
  42. ROHYPNOL [Concomitant]
     Active Substance: FLUNITRAZEPAM
     Indication: INSOMNIA
     Route: 065
     Dates: start: 20180224, end: 20180320
  43. PRIMPERAN [Concomitant]
     Active Substance: METOCLOPRAMIDE HYDROCHLORIDE
     Route: 065
     Dates: start: 20180317, end: 20180402
  44. PROPOFOL. [Concomitant]
     Active Substance: PROPOFOL
     Indication: ANAESTHESIA
     Route: 065
     Dates: start: 20180316, end: 20180316
  45. FESIN (JAPAN) [Concomitant]
     Active Substance: IRON SUCROSE
     Indication: ANAEMIA
     Route: 065
     Dates: start: 20180317, end: 20180326
  46. CARBOPLATIN. [Suspect]
     Active Substance: CARBOPLATIN
     Route: 042
     Dates: start: 20180710
  47. TSUMURA DAIKENCHUTO [Concomitant]
     Active Substance: HERBALS
     Route: 065
     Dates: start: 20180112, end: 20180222
  48. TSUMURA DAIKENCHUTO [Concomitant]
     Active Substance: HERBALS
     Route: 065
     Dates: start: 20180321
  49. ACELIO [Concomitant]
     Active Substance: ACETAMINOPHEN
     Indication: ABDOMINAL PAIN
     Route: 042
     Dates: start: 20180120, end: 20180122
  50. CEFMETAZOLE NA [Concomitant]
     Active Substance: CEFMETAZOLE
     Indication: INFECTION PROPHYLAXIS
     Route: 065
     Dates: start: 20180120, end: 20180122
  51. CEFMETAZOLE NA [Concomitant]
     Active Substance: CEFMETAZOLE
     Route: 065
     Dates: start: 20180316, end: 20180316
  52. HEPARINOID [Concomitant]
     Active Substance: CHONDROITIN SULFATE (BOVINE)
     Indication: DRY SKIN
     Route: 061
     Dates: start: 20180307, end: 20180315
  53. ULTIVA [Concomitant]
     Active Substance: REMIFENTANIL HYDROCHLORIDE
     Indication: ANAESTHESIA
     Route: 042
     Dates: start: 20180316, end: 20180316
  54. EPHEDRINE HYDROCHLORIDE [Concomitant]
     Active Substance: EPHEDRINE HYDROCHLORIDE
     Indication: ANAESTHESIA
     Route: 065
     Dates: start: 20180316, end: 20180316
  55. VOLUVEN (JAPAN) [Concomitant]
     Route: 065
     Dates: start: 20180316, end: 20180316
  56. KENEI G [Concomitant]
     Active Substance: GLYCERIN
     Route: 065
     Dates: start: 20180315, end: 20180315
  57. LOXOPROFEN [Concomitant]
     Active Substance: LOXOPROFEN
     Indication: ARTHRALGIA
     Route: 065
     Dates: start: 20171223, end: 20180220
  58. FAMOTIDINE. [Concomitant]
     Active Substance: FAMOTIDINE
     Route: 065
     Dates: start: 20180317, end: 20180326
  59. CLEXANE [Concomitant]
     Active Substance: ENOXAPARIN SODIUM
     Route: 065
     Dates: start: 20180317, end: 20180324
  60. DROLEPTAN [Concomitant]
     Active Substance: DROPERIDOL
     Route: 065
     Dates: start: 20180316, end: 20180316
  61. DEXART [Concomitant]
     Active Substance: DEXAMETHASONE SODIUM PHOSPHATE
     Route: 048
     Dates: start: 20180316, end: 20180316
  62. MAGCOROL P [Concomitant]
     Active Substance: MAGNESIUM CITRATE
     Route: 065
     Dates: start: 20180315, end: 20180315
  63. BLINDED ATEZOLIZUMAB [Suspect]
     Active Substance: ATEZOLIZUMAB
     Indication: OVARIAN CANCER
     Dosage: DATE OF MOST RECENT DOSE OF BLINDED ATEZOLIZUMAB PRIOR TO SAE ONSET 06/FEB/2018
     Route: 042
     Dates: start: 20171222, end: 20180426
  64. MAGNESIUM OXIDE. [Concomitant]
     Active Substance: MAGNESIUM OXIDE
     Route: 065
     Dates: start: 20180112, end: 20180405
  65. LACTEC [Concomitant]
     Active Substance: CALCIUM CHLORIDE ANHYDROUS\POTASSIUM CHLORIDE\SODIUM CHLORIDE\SODIUM LACTATE
     Route: 065
     Dates: start: 20180120, end: 20180125
  66. XYLOCAINE [Concomitant]
     Active Substance: LIDOCAINE HYDROCHLORIDE
     Route: 065
     Dates: start: 20180320
  67. KENKETSU ALBUMIN [Concomitant]
     Route: 065
     Dates: start: 20180316, end: 20180317
  68. PRIMPERAN [Concomitant]
     Active Substance: METOCLOPRAMIDE HYDROCHLORIDE
     Indication: NAUSEA
     Route: 065
     Dates: start: 20180424, end: 20180424

REACTIONS (1)
  - Pneumatosis intestinalis [Recovered/Resolved]

NARRATIVE: CASE EVENT DATE: 20180220
